FAERS Safety Report 26107907 (Version 1)
Quarter: 2025Q4

REPORT INFORMATION
  Report Type: Spontaneous
  Country: CA (occurrence: None)
  Receive Date: 20251127
  Receipt Date: 20251127
  Transmission Date: 20260118
  Serious: Yes (unspecified)
  Sender: FDA-CTU
  Company Number: None

PATIENT
  Age: 74 Year
  Sex: Male
  Weight: 57 kg

DRUGS (2)
  1. PREDNISONE [Suspect]
     Active Substance: PREDNISONE
     Indication: Deafness
     Dosage: OTHER STRENGTH : NA?OTHER QUANTITY : 108 TABLET(S)?
     Route: 048
     Dates: start: 20251107, end: 20251115
  2. PREDNISONE [Concomitant]
     Active Substance: PREDNISONE

REACTIONS (2)
  - Oropharyngeal pain [None]
  - Cough [None]

NARRATIVE: CASE EVENT DATE: 20251122
